FAERS Safety Report 8505414-6 (Version None)
Quarter: 2012Q3

REPORT INFORMATION
  Report Type: 
  Country: None (occurrence: None)
  Receive Date: 20120712
  Receipt Date: 20120706
  Transmission Date: 20120928
  Serious: Yes (Life-Threatening)
  Sender: FDA-Public Use
  Company Number: JP-PFIZER INC-2012111410

PATIENT
  Age: 67 Year
  Sex: Female
  Weight: 42 kg

DRUGS (25)
  1. RIFAMPICIN [Concomitant]
     Dosage: 600 MG DAILY
     Dates: start: 20120307
  2. ETHAMBUTOL [Concomitant]
     Dosage: 500 MG, UNK
     Dates: start: 20120316
  3. ACETAMINOPHEN [Suspect]
     Indication: ANALGESIC THERAPY
  4. PYRAZINAMIDE [Concomitant]
     Dosage: 1 G, UNK
     Dates: start: 20120316
  5. CLINDAMYCIN HCL [Suspect]
     Indication: MENINGITIS
     Dosage: 1200 G, 2X/DAY
     Route: 042
     Dates: start: 20120411, end: 20120506
  6. VANCOMYCIN HYDROCHLORIDE [Suspect]
     Indication: MUSCLE ABSCESS
     Dosage: 0.25 MG, 2X/DAY, EVERY OTHER DAY
     Route: 042
     Dates: start: 20120307, end: 20120409
  7. DEPAKENE [Suspect]
     Indication: CONVULSION
     Dosage: 400 MG (8ML) DAILY
     Route: 045
     Dates: start: 20120413, end: 20120507
  8. PRODIF [Concomitant]
     Indication: SYSTEMIC CANDIDA
     Dosage: UNK
     Dates: start: 20120411, end: 20120424
  9. PREDNISOLONE [Concomitant]
     Indication: ASTHMA
     Dosage: 5 MG A DAY
     Route: 045
     Dates: start: 20120503, end: 20120507
  10. ISONIAZID [Concomitant]
     Dosage: 300 MG, DAILY
     Dates: start: 20120307
  11. MEROPENEM [Suspect]
     Indication: MENINGITIS
     Dosage: 0.5 G, DAILY
     Route: 042
     Dates: start: 20120117, end: 20120216
  12. MEROPENEM [Suspect]
     Dosage: 2 G, DAILY
     Route: 042
     Dates: start: 20120427, end: 20120506
  13. CEFTRIAXONE [Concomitant]
     Dosage: 2 G, 2X/DAY
     Dates: start: 20120217
  14. VANCOMYCIN HYDROCHLORIDE [Suspect]
     Indication: MENINGITIS
     Dosage: 0.25 G, 2X/WEEK
     Route: 042
     Dates: start: 20120207, end: 20120215
  15. CEFAZOLIN SODIUM [Suspect]
     Indication: PROPHYLAXIS AGAINST DIARRHOEA
     Dosage: 1 G, 3X/DAY
     Route: 045
     Dates: start: 20120419, end: 20120507
  16. AMPICILLIN [Concomitant]
     Dosage: 1 G, 2X/DAY
     Dates: start: 20120217
  17. CLINDAMYCIN HCL [Suspect]
     Indication: MUSCLE ABSCESS
  18. AMBISOME [Suspect]
     Indication: INFECTION
     Dosage: 100 MG A DAY
     Route: 042
     Dates: start: 20120425, end: 20120504
  19. LANSOPRAZOLE [Suspect]
     Indication: GASTRIC ULCER
     Dosage: 30 MG A DAY
     Route: 045
     Dates: start: 20120321, end: 20120507
  20. ALBUMIN TANNATE [Suspect]
     Indication: PROPHYLAXIS AGAINST DIARRHOEA
     Dosage: 1 G, AS NEEDED
     Route: 045
     Dates: start: 20120427, end: 20120507
  21. LENDORMIN [Suspect]
     Indication: INSOMNIA
     Dosage: 0.25 MG, AS NEEDED
     Route: 045
     Dates: start: 20120421
  22. MEROPENEM [Suspect]
     Indication: MUSCLE ABSCESS
     Dosage: 1 G, DAILY
     Route: 042
     Dates: start: 20120411, end: 20120420
  23. VANCOMYCIN HYDROCHLORIDE [Suspect]
     Dosage: 0.25 G, 2X/WEEK
     Dates: start: 20120427, end: 20120506
  24. ALFAROL [Suspect]
     Indication: OSTEOPOROSIS
     Dosage: 0.5 UG (1ML) A DAY
     Route: 045
     Dates: start: 20120419, end: 20120507
  25. ACETAMINOPHEN [Suspect]
     Indication: ANTIPYRESIS
     Dosage: 0.4 MG, AS NEEDED
     Route: 045
     Dates: start: 20120101, end: 20120507

REACTIONS (1)
  - TOXIC EPIDERMAL NECROLYSIS [None]
